FAERS Safety Report 15526323 (Version 1)
Quarter: 2018Q4

REPORT INFORMATION
  Report Type: Spontaneous
  Country: RU (occurrence: RU)
  Receive Date: 20181018
  Receipt Date: 20181018
  Transmission Date: 20190205
  Serious: Yes (Hospitalization, Disabling, Other)
  Sender: FDA-Public Use
  Company Number: RU-BAYER-2018-192818

PATIENT
  Age: 22 Year
  Sex: Male

DRUGS (1)
  1. INTERFERON BETA - 1B [Suspect]
     Active Substance: INTERFERON BETA-1B
     Indication: RELAPSING-REMITTING MULTIPLE SCLEROSIS
     Dosage: UNK
     Dates: start: 201606, end: 201701

REACTIONS (27)
  - Coordination abnormal [None]
  - Mobility decreased [None]
  - Hemiparesis [None]
  - Asthenia [None]
  - Gait disturbance [None]
  - Disorientation [None]
  - Cognitive disorder [None]
  - Coordination abnormal [None]
  - Ataxia [None]
  - Hemiparesis [None]
  - Speech disorder [None]
  - Aggression [None]
  - Generalised tonic-clonic seizure [None]
  - Confusional state [None]
  - Demyelination [None]
  - Disturbance in attention [None]
  - Dementia [None]
  - Memory impairment [None]
  - Viral infection [None]
  - Hemianaesthesia [None]
  - Hemianaesthesia [None]
  - Psychotic disorder [Recovered/Resolved]
  - Partial seizures [None]
  - Demyelination [None]
  - Multiple sclerosis relapse [None]
  - Amnesia [None]
  - Drug resistance [None]

NARRATIVE: CASE EVENT DATE: 201608
